FAERS Safety Report 16959999 (Version 3)
Quarter: 2019Q4

REPORT INFORMATION
  Report Type: Report from Study
  Country: US (occurrence: US)
  Receive Date: 20191025
  Receipt Date: 20191101
  Transmission Date: 20200122
  Serious: Yes (Hospitalization)
  Sender: FDA-Public Use
  Company Number: US-ROCHE-2444253

PATIENT
  Age: 54 Year
  Sex: Male
  Weight: 71.7 kg

DRUGS (19)
  1. PREDNISONE. [Suspect]
     Active Substance: PREDNISONE
     Indication: LYMPHOMA
     Dosage: MOST RECENT DOSE ON 11/JUL/2019
     Route: 048
     Dates: start: 20190418
  2. ONDANSETRON [Concomitant]
     Active Substance: ONDANSETRON
     Route: 065
     Dates: start: 20190329
  3. ETOPOSIDE. [Suspect]
     Active Substance: ETOPOSIDE
     Indication: LYMPHOMA
     Dosage: MOST RECENT DOSE ON 11/JUL/2019
     Route: 042
     Dates: start: 20190418
  4. OXYCODONE [Concomitant]
     Active Substance: OXYCODONE
     Route: 065
  5. SENNA PLUS [DOCUSATE SODIUM;SENNOSIDE A+B] [Concomitant]
  6. PROCHLORPERAZINE. [Concomitant]
     Active Substance: PROCHLORPERAZINE
     Route: 065
     Dates: start: 20190329
  7. VALGANCICLOVIR. [Concomitant]
     Active Substance: VALGANCICLOVIR
     Route: 065
     Dates: start: 20190419
  8. LORATADINE. [Concomitant]
     Active Substance: LORATADINE
     Route: 065
     Dates: start: 2019
  9. TRIMIPRAMINE [Concomitant]
     Active Substance: TRIMIPRAMINE
  10. SULFAMETHOXAZOLE [Concomitant]
     Active Substance: SULFAMETHOXAZOLE
     Dosage: 800-160 MG
     Route: 065
     Dates: start: 20190329
  11. VENETOCLAX. [Suspect]
     Active Substance: VENETOCLAX
     Indication: LYMPHOMA
     Dosage: MOST RECENT DOSE ON 11/JUL/2019
     Route: 048
     Dates: start: 20190418
  12. DOXORUBICIN [Suspect]
     Active Substance: DOXORUBICIN
     Indication: LYMPHOMA
     Dosage: MOST RECENT DOSE ON 11/JUL/2019
     Route: 042
     Dates: start: 20190418
  13. ACYCLOVIR [ACICLOVIR] [Concomitant]
     Active Substance: ACYCLOVIR
     Route: 065
  14. IBUPROFEN. [Concomitant]
     Active Substance: IBUPROFEN
     Route: 065
     Dates: start: 2019
  15. VINCRISTINE [Suspect]
     Active Substance: VINCRISTINE
     Indication: LYMPHOMA
     Dosage: MOST RECENT DOSE ON 11/JUL/2019
     Route: 042
     Dates: start: 20190418
  16. RITUXIMAB. [Suspect]
     Active Substance: RITUXIMAB
     Indication: LYMPHOMA
     Dosage: MOST RECENT DOSE ON 11/JUL/2019
     Route: 042
     Dates: start: 20190418
  17. LISINOPRIL. [Concomitant]
     Active Substance: LISINOPRIL
     Route: 065
  18. CYCLOPHOSPHAMIDE. [Suspect]
     Active Substance: CYCLOPHOSPHAMIDE
     Indication: LYMPHOMA
     Dosage: MOST RECENT DOSE ON 11/JUL/2019
     Route: 042
     Dates: start: 20190418
  19. ALLOPURINOL. [Concomitant]
     Active Substance: ALLOPURINOL
     Route: 065

REACTIONS (4)
  - Enteritis [Recovered/Resolved]
  - Febrile neutropenia [Unknown]
  - Abdominal pain [Recovered/Resolved]
  - Mesenteric panniculitis [Recovered/Resolved]

NARRATIVE: CASE EVENT DATE: 20190428
